FAERS Safety Report 7751675-0 (Version None)
Quarter: 2011Q3

REPORT INFORMATION
  Report Type: 
  Country: None (occurrence: None)
  Receive Date: 20110914
  Receipt Date: 20110909
  Transmission Date: 20111222
  Serious: Yes (Other)
  Sender: FDA-Public Use
  Company Number: GB-BRISTOL-MYERS SQUIBB COMPANY-16047383

PATIENT
  Age: 19 Year
  Sex: Male

DRUGS (2)
  1. ARIPIPRAZOLE [Suspect]
  2. CLOZAPINE [Suspect]
     Dosage: 1 DF= 200MG IN THE MORNING AND 125 MG AT NIGHT
     Route: 048
     Dates: start: 20101224

REACTIONS (2)
  - DRUG INTERACTION [None]
  - HYPOTHERMIA [None]
